FAERS Safety Report 9676233 (Version 3)
Quarter: 2014Q2

REPORT INFORMATION
  Report Type: Spontaneous
  Country: US (occurrence: US)
  Receive Date: 20131107
  Receipt Date: 20140425
  Transmission Date: 20141212
  Serious: Yes (Death, Hospitalization)
  Sender: FDA-Public Use
  Company Number: US-B.I. PHARMACEUTICALS,INC./RIDGEFIELD-2013-BI-35270BP

PATIENT
  Sex: Female
  Weight: 59.9 kg

DRUGS (22)
  1. PRADAXA [Suspect]
     Indication: ATRIAL FIBRILLATION
     Dosage: 300 MG
     Route: 048
     Dates: start: 20110823, end: 20111227
  2. PRADAXA [Suspect]
     Indication: ANTICOAGULANT THERAPY
  3. ATIVAN [Concomitant]
     Dosage: 1.5 MG
     Route: 065
     Dates: start: 200801, end: 201112
  4. LEVOTHYROXINE [Concomitant]
     Dosage: 0.05 MG
     Route: 065
     Dates: start: 200711, end: 201112
  5. FUROSEMIDE [Concomitant]
     Dosage: 40 MG
     Route: 065
     Dates: start: 201102, end: 201112
  6. KLOR-CON [Concomitant]
     Route: 065
     Dates: start: 201102, end: 201112
  7. LIPITOR [Concomitant]
     Route: 065
     Dates: start: 201108, end: 201112
  8. PAROXETINE [Concomitant]
     Dosage: 20 MG
     Route: 065
     Dates: start: 200810, end: 201112
  9. AMLODIPINE [Concomitant]
     Route: 065
     Dates: start: 200909, end: 201112
  10. DIGOXIN [Concomitant]
     Route: 065
     Dates: start: 201102, end: 201112
  11. DILTIAZEM CD [Concomitant]
     Dosage: 300 MG
     Route: 065
     Dates: start: 201102, end: 201112
  12. ZOLPIDEM [Concomitant]
     Route: 065
     Dates: start: 200801, end: 201112
  13. THERAGRAN [Concomitant]
     Route: 065
  14. CALTRATE [Concomitant]
     Route: 065
  15. MIRALAX [Concomitant]
     Route: 065
  16. TYLENOL [Concomitant]
     Dosage: 3000 MG
     Route: 065
  17. LISINOPRIL [Concomitant]
     Route: 065
  18. ASPIRIN [Concomitant]
     Dosage: 81 MG
     Route: 065
  19. MULTIVITAMIN [Concomitant]
     Route: 065
  20. PERICOLACE [Concomitant]
     Route: 065
  21. SIMVASTATIN [Concomitant]
     Dosage: 10 MG
     Route: 065
  22. LEVOFLOXACIN [Concomitant]
     Dosage: 500 MG
     Route: 065

REACTIONS (6)
  - Lower gastrointestinal haemorrhage [Fatal]
  - Cardiac arrest [Fatal]
  - Circulatory collapse [Fatal]
  - Acute respiratory failure [Fatal]
  - Septic shock [Fatal]
  - Large intestinal obstruction [Fatal]
